FAERS Safety Report 16281878 (Version 4)
Quarter: 2019Q2

REPORT INFORMATION
  Report Type: Report from Study
  Country: US (occurrence: US)
  Receive Date: 20190507
  Receipt Date: 20190524
  Transmission Date: 20190711
  Serious: Yes (Hospitalization, Other)
  Sender: FDA-Public Use
  Company Number: US-GILEAD-2019-0405948

PATIENT
  Age: 57 Year
  Sex: Female

DRUGS (2)
  1. AMBRISENTAN [Suspect]
     Active Substance: AMBRISENTAN
     Indication: PULMONARY ARTERIAL HYPERTENSION
     Dosage: 10 MG, QD
     Route: 048
     Dates: start: 20190429
  2. TADALAFIL. [Concomitant]
     Active Substance: TADALAFIL

REACTIONS (25)
  - Eye contusion [Unknown]
  - Influenza like illness [Not Recovered/Not Resolved]
  - Urine output decreased [Not Recovered/Not Resolved]
  - Headache [Not Recovered/Not Resolved]
  - Diarrhoea [Unknown]
  - Exophthalmos [Not Recovered/Not Resolved]
  - Decreased appetite [Not Recovered/Not Resolved]
  - Vision blurred [Unknown]
  - Pain [Unknown]
  - Migraine [Unknown]
  - Swelling face [Unknown]
  - Bowel movement irregularity [Unknown]
  - Constipation [Unknown]
  - Headache [Unknown]
  - Eye pain [Unknown]
  - Skin tightness [Not Recovered/Not Resolved]
  - Vomiting [Not Recovered/Not Resolved]
  - Ocular discomfort [Unknown]
  - Fluid retention [Not Recovered/Not Resolved]
  - Oedema [Not Recovered/Not Resolved]
  - Liver disorder [Not Recovered/Not Resolved]
  - Urinary retention [Unknown]
  - Weight increased [Unknown]
  - Eye swelling [Unknown]
  - Pleural effusion [Not Recovered/Not Resolved]
